FAERS Safety Report 26188819 (Version 1)
Quarter: 2025Q4

REPORT INFORMATION
  Report Type: Other
  Country: EU (occurrence: EU)
  Receive Date: 20251222
  Receipt Date: 20251222
  Transmission Date: 20260117
  Serious: Yes (Other)
  Sender: NOVITIUM PHARMA
  Company Number: EU-NOVITIUM PHARMA-000406

PATIENT
  Age: 52 Year
  Sex: Male

DRUGS (3)
  1. DAPSONE [Suspect]
     Active Substance: DAPSONE
     Indication: Pemphigoid
     Dosage: BODY WEIGHT
  2. PREDNISOLONE [Concomitant]
     Active Substance: PREDNISOLONE
     Indication: Pemphigoid
     Dosage: BODY WEIGHT
     Route: 048
  3. PREDNISOLONE [Concomitant]
     Active Substance: PREDNISOLONE
     Indication: Pemphigoid
     Dosage: TAPERED
     Route: 048

REACTIONS (10)
  - Pericardial effusion [Unknown]
  - Fatigue [Unknown]
  - Tinea infection [Unknown]
  - Blood pressure abnormal [Unknown]
  - Rash [Unknown]
  - Dyspnoea [Unknown]
  - Hypertension [Unknown]
  - Disease recurrence [Unknown]
  - Supraventricular tachycardia [Unknown]
  - Tinnitus [Unknown]
